FAERS Safety Report 4647730-4 (Version None)
Quarter: 2005Q2

REPORT INFORMATION
  Report Type: 
  Country: None (occurrence: None)
  Receive Date: 20050426
  Receipt Date: 20050413
  Transmission Date: 20051028
  Serious: Yes (Hospitalization)
  Sender: FDA-Public Use
  Company Number: 05P-087-0295978-00

PATIENT
  Age: 22 Year
  Sex: Female
  Weight: 49 kg

DRUGS (4)
  1. BIAXIN [Suspect]
     Indication: NASOPHARYNGITIS
     Dosage: 200 MG, 2 IN 1 D, PER ORAL
     Route: 048
     Dates: start: 20040524, end: 20040526
  2. FOMINOBEN HYDROCHLORIDE [Concomitant]
  3. CLOPERASTINE [Concomitant]
  4. PELEX [Concomitant]

REACTIONS (5)
  - ELECTROCARDIOGRAM QT PROLONGED [None]
  - LONG QT SYNDROME [None]
  - TONIC CONVULSION [None]
  - VENTRICULAR FIBRILLATION [None]
  - VENTRICULAR TACHYCARDIA [None]
